FAERS Safety Report 11470698 (Version 2)
Quarter: 2015Q3

REPORT INFORMATION
  Report Type: Spontaneous
  Country: US (occurrence: US)
  Receive Date: 20150903
  Receipt Date: 20150903
  Transmission Date: 20151125
  Serious: No
  Sender: FDA-Public Use
  Company Number: US-ELI_LILLY_AND_COMPANY-US201201000932

PATIENT
  Age: 70 Year
  Sex: Female

DRUGS (3)
  1. CYMBALTA [Suspect]
     Active Substance: DULOXETINE HYDROCHLORIDE
     Indication: MIGRAINE
     Dosage: 60 MG, QD
  2. CYMBALTA [Suspect]
     Active Substance: DULOXETINE HYDROCHLORIDE
     Dosage: UNK, UNKNOWN
  3. CYMBALTA [Suspect]
     Active Substance: DULOXETINE HYDROCHLORIDE
     Dosage: UNK, UNKNOWN

REACTIONS (10)
  - Depressed mood [Recovering/Resolving]
  - Feeling hot [Unknown]
  - Off label use [Not Recovered/Not Resolved]
  - Lethargy [Recovering/Resolving]
  - Wrong technique in product usage process [Recovered/Resolved]
  - Feeling abnormal [Recovering/Resolving]
  - Unevaluable event [Recovering/Resolving]
  - Hyperhidrosis [Unknown]
  - Dizziness [Recovering/Resolving]
  - Drug withdrawal syndrome [Recovering/Resolving]
